FAERS Safety Report 24029955 (Version 1)
Quarter: 2024Q2

REPORT INFORMATION
  Report Type: Spontaneous
  Country: CN (occurrence: CN)
  Receive Date: 20240628
  Receipt Date: 20240628
  Transmission Date: 20240715
  Serious: Yes (Disabling)
  Sender: FDA-Public Use
  Company Number: CN-Eisai-EC-2024-168796

PATIENT
  Age: 65 Year
  Sex: Male
  Weight: 55 kg

DRUGS (1)
  1. LENVATINIB [Suspect]
     Active Substance: LENVATINIB
     Indication: Hepatic cancer
     Route: 048
     Dates: start: 20240506, end: 20240618

REACTIONS (2)
  - Protein urine present [Unknown]
  - Urinary occult blood positive [Unknown]

NARRATIVE: CASE EVENT DATE: 20240618
